FAERS Safety Report 19905355 (Version 1)
Quarter: 2021Q4

REPORT INFORMATION
  Report Type: Spontaneous
  Country: FR (occurrence: FR)
  Receive Date: 20211001
  Receipt Date: 20211001
  Transmission Date: 20220303
  Serious: Yes (Hospitalization, Other)
  Sender: FDA-Public Use
  Company Number: None

PATIENT
  Age: 47 Year
  Sex: Male
  Weight: 50 kg

DRUGS (7)
  1. LEVETIRACETAM [Suspect]
     Active Substance: LEVETIRACETAM
     Indication: Generalised tonic-clonic seizure
     Dosage: 1500 MILLIGRAM, Q8H
     Route: 048
     Dates: start: 20210422
  2. CLOBAZAM [Suspect]
     Active Substance: CLOBAZAM
     Indication: Generalised tonic-clonic seizure
     Dosage: POSOLOGIE INCONNUE
     Route: 048
     Dates: start: 20210422
  3. MIDODRINE HYDROCHLORIDE [Concomitant]
     Active Substance: MIDODRINE HYDROCHLORIDE
     Indication: Autonomic nervous system imbalance
     Dosage: UNK
     Dates: start: 20210505
  4. LEVOTHYROXINE [Concomitant]
     Active Substance: LEVOTHYROXINE
     Indication: Hypothyroidism
     Dosage: UNK
     Dates: start: 20210422
  5. CEFEPIME [Concomitant]
     Active Substance: CEFEPIME HYDROCHLORIDE
     Indication: Pneumonia
     Dosage: 500 MILLIGRAM, Q8H
     Route: 042
     Dates: start: 20210505, end: 20210508
  6. NOVORAPID [Concomitant]
     Active Substance: INSULIN ASPART
     Indication: Insulin-requiring type 2 diabetes mellitus
     Dosage: UNK
  7. LEVEMIR [Concomitant]
     Active Substance: INSULIN DETEMIR
     Indication: Insulin-requiring type 2 diabetes mellitus
     Dosage: UNK

REACTIONS (3)
  - Drug level increased [Recovering/Resolving]
  - Encephalopathy [Recovered/Resolved]
  - Coma [Recovered/Resolved]

NARRATIVE: CASE EVENT DATE: 20210427
